FAERS Safety Report 10966502 (Version 3)
Quarter: 2015Q2

REPORT INFORMATION
  Report Type: Spontaneous
  Country: AU (occurrence: AU)
  Receive Date: 20150330
  Receipt Date: 20150505
  Transmission Date: 20150821
  Serious: Yes (Life-Threatening)
  Sender: FDA-Public Use
  Company Number: AU-GE HEALTHCARE MEDICAL DIAGNOSTICS-OMPQ-PR-1503S-0261

PATIENT
  Age: 57 Year
  Sex: Female

DRUGS (8)
  1. BETNOVATE [Concomitant]
     Active Substance: BETAMETHASONE
  2. RABIPUR [Concomitant]
     Dates: start: 20150217
  3. RABIPUR [Concomitant]
     Dates: start: 20150310
  4. VIVAXIM [Concomitant]
     Dates: start: 20150217
  5. YELLOW FEVER VACCINE NOS [Concomitant]
     Active Substance: YELLOW FEVER VIRUS STRAIN 17D-204 LIVE ANTIGEN
     Dates: start: 20150209
  6. OMNIPAQUE [Suspect]
     Active Substance: IOHEXOL
     Indication: DIAGNOSTIC PROCEDURE
  7. RABIPUR [Concomitant]
     Dates: start: 20150209
  8. OMNIPAQUE [Suspect]
     Active Substance: IOHEXOL
     Indication: INFECTION
     Route: 042
     Dates: start: 20150313, end: 20150313

REACTIONS (5)
  - Pharyngeal oedema [Recovered/Resolved]
  - Hypotension [Recovered/Resolved]
  - Anaphylactic reaction [Recovered/Resolved]
  - Hypoaesthesia oral [Recovered/Resolved]
  - Dyspnoea [Recovered/Resolved]

NARRATIVE: CASE EVENT DATE: 20150313
